FAERS Safety Report 18431517 (Version 1)
Quarter: 2020Q4

REPORT INFORMATION
  Report Type: Report from Study
  Country: HN (occurrence: HN)
  Receive Date: 20201027
  Receipt Date: 20201027
  Transmission Date: 20210114
  Serious: Yes (Other)
  Sender: FDA-Public Use
  Company Number: HN-BAYER-2020-225151

PATIENT
  Age: 59 Year
  Sex: Male

DRUGS (5)
  1. ENALAPRIL [Concomitant]
     Active Substance: ENALAPRIL
     Dosage: UNK
     Dates: start: 2016
  2. STIVARGA [Suspect]
     Active Substance: REGORAFENIB
     Dosage: UNK
     Dates: start: 20200107
  3. DICLOFENAC [Concomitant]
     Active Substance: DICLOFENAC
     Dosage: UNK UNK, PRN
     Dates: start: 202009
  4. NEOBOL [Concomitant]
     Dosage: USE WHEN NECESSARY FOR BURNED SKIN ON TESTICLES
     Dates: start: 202009
  5. CONTRACTUBEX [Concomitant]
     Dosage: USE WHEN NECESSARY FOR BURNED SKIN
     Dates: start: 202009

REACTIONS (2)
  - Skin burning sensation [Not Recovered/Not Resolved]
  - Throat irritation [Not Recovered/Not Resolved]

NARRATIVE: CASE EVENT DATE: 20201016
